APPROVED DRUG PRODUCT: METHOCARBAMOL
Active Ingredient: METHOCARBAMOL
Strength: 500MG
Dosage Form/Route: TABLET;ORAL
Application: A040413 | Product #001
Applicant: ABLE LABORATORIES INC
Approved: Mar 17, 2003 | RLD: No | RS: No | Type: DISCN